FAERS Safety Report 24840523 (Version 1)
Quarter: 2025Q1

REPORT INFORMATION
  Report Type: Spontaneous
  Country: US (occurrence: US)
  Receive Date: 20250114
  Receipt Date: 20250114
  Transmission Date: 20250408
  Serious: Yes (Other)
  Sender: CHEPLAPHARM
  Company Number: US-CHEPLA-2025000609

PATIENT
  Age: 32 Year
  Sex: Male

DRUGS (2)
  1. HYDROXYUREA [Suspect]
     Active Substance: HYDROXYUREA
     Indication: Thalassaemia beta
     Dosage: INCREASED TO 2000 MG DAILY?DAILY DOSE: 2000 MILLIGRAM
  2. HYDROXYUREA [Suspect]
     Active Substance: HYDROXYUREA
     Indication: Thalassaemia beta

REACTIONS (9)
  - Pulmonary embolism [Unknown]
  - Cold type haemolytic anaemia [Unknown]
  - Thrombocytosis [Unknown]
  - Fatigue [Unknown]
  - Pain in jaw [Unknown]
  - Marrow hyperplasia [Unknown]
  - Mycoplasma infection [Unknown]
  - Marrow hyperplasia [Unknown]
  - Off label use [Recovered/Resolved]
